FAERS Safety Report 19010538 (Version 1)
Quarter: 2021Q1

REPORT INFORMATION
  Report Type: Spontaneous
  Country: BR (occurrence: BR)
  Receive Date: 20210315
  Receipt Date: 20210315
  Transmission Date: 20210420
  Serious: Yes (Other)
  Sender: FDA-Public Use
  Company Number: BR-PFIZER INC-2021222915

PATIENT
  Sex: Female

DRUGS (1)
  1. SOLU?MEDROL [Suspect]
     Active Substance: METHYLPREDNISOLONE SODIUM SUCCINATE
     Indication: MULTIPLE SCLEROSIS
     Dosage: ONE APPLICATION EVERY 15 DAYS
     Dates: start: 2000

REACTIONS (3)
  - Paralysis [Unknown]
  - Drug dependence [Unknown]
  - Product use issue [Unknown]
